FAERS Safety Report 4429105-6 (Version None)
Quarter: 2004Q3

REPORT INFORMATION
  Report Type: 
  Country: None (occurrence: None)
  Receive Date: 20040726
  Receipt Date: 20040303
  Transmission Date: 20050211
  Serious: No
  Sender: FDA-Public Use
  Company Number: USA040258799

PATIENT
  Age: 73 Year
  Sex: Female

DRUGS (11)
  1. FORTEO [Suspect]
     Dates: start: 20040203
  2. OMEPRAZOLE [Concomitant]
  3. LANSOPRAZOLE [Concomitant]
  4. LASIX [Concomitant]
  5. EXTRA STRENGTH TYLENOL [Concomitant]
  6. FOLIC ACID [Concomitant]
  7. ASPIRIN [Concomitant]
  8. ASCORBIC ACID [Concomitant]
  9. CALCIUM CARBONATE [Concomitant]
  10. MULTI-VITAMIN [Concomitant]
  11. TEMAZEPAM [Concomitant]

REACTIONS (3)
  - ASTHENIA [None]
  - FEELING ABNORMAL [None]
  - HEART RATE INCREASED [None]
